FAERS Safety Report 8830903 (Version 2)
Quarter: 2013Q1

REPORT INFORMATION
  Report Type: Spontaneous
  Country: CH (occurrence: CH)
  Receive Date: 20121008
  Receipt Date: 20130205
  Transmission Date: 20140127
  Serious: Yes (Hospitalization, Other)
  Sender: FDA-Public Use
  Company Number: CH-ACTELION-A-CH2012-72185

PATIENT
  Age: 16 Year
  Sex: Male
  Weight: 36.1 kg

DRUGS (4)
  1. TRACLEER [Suspect]
     Indication: PULMONARY ARTERIAL HYPERTENSION
     Dosage: 62.5 MG, TID
     Route: 048
  2. TRACLEER [Suspect]
     Dosage: 62.5 MG, BID
     Route: 048
     Dates: start: 200208
  3. SILDENAFIL [Concomitant]
     Dosage: 40 MG, TID
     Dates: start: 200909
  4. MARCOUMAR [Concomitant]

REACTIONS (2)
  - Psychotic disorder [Recovered/Resolved]
  - Hallucination [Recovered/Resolved]
